FAERS Safety Report 11001695 (Version 1)
Quarter: 2015Q2

REPORT INFORMATION
  Report Type: Spontaneous
  Country: US (occurrence: US)
  Receive Date: 20150408
  Receipt Date: 20150408
  Transmission Date: 20150821
  Serious: Yes (Other)
  Sender: FDA-Public Use
  Company Number: PHHY2015US040481

PATIENT
  Sex: Female

DRUGS (7)
  1. MORPHINE SULFATE. [Suspect]
     Active Substance: MORPHINE SULFATE
     Indication: PRODUCT USED FOR UNKNOWN INDICATION
     Dosage: 1 DF, PRN (EVERY 4 HOURS) (15 MG TABLET)
     Route: 065
  2. BACLOFEN INTRATHECAL [Suspect]
     Active Substance: BACLOFEN
     Indication: POST LAMINECTOMY SYNDROME
     Dosage: 480 UG, PER DAY
     Route: 037
  3. SUFENTANIL [Suspect]
     Active Substance: SUFENTANIL
     Indication: POST LAMINECTOMY SYNDROME
     Dosage: 16 UG, PER DAY
     Route: 037
  4. GABAPENTIN. [Suspect]
     Active Substance: GABAPENTIN
     Indication: PRODUCT USED FOR UNKNOWN INDICATION
     Dosage: 300 MG, QID
     Route: 048
  5. BUPIVACAINE [Suspect]
     Active Substance: BUPIVACAINE
     Indication: PRODUCT USED FOR UNKNOWN INDICATION
     Dosage: 16 MG, PER DAY
     Route: 037
  6. PRIALT [Suspect]
     Active Substance: ZICONOTIDE ACETATE
     Indication: PRODUCT USED FOR UNKNOWN INDICATION
     Dosage: 4.26 UG, PER DAY
     Route: 037
  7. SKELAXIN [Suspect]
     Active Substance: METAXALONE
     Indication: PRODUCT USED FOR UNKNOWN INDICATION
     Dosage: 400 MG, BID
     Route: 065

REACTIONS (18)
  - Dizziness [Unknown]
  - Hypoaesthesia [Unknown]
  - Sciatica [Unknown]
  - Abnormal loss of weight [Unknown]
  - Neck pain [Unknown]
  - Drug withdrawal syndrome [Unknown]
  - Peripheral swelling [Unknown]
  - Fatigue [Unknown]
  - Paraesthesia [Unknown]
  - Muscle spasms [Unknown]
  - Insomnia [Unknown]
  - Nausea [Unknown]
  - Pain [Unknown]
  - Somnolence [Unknown]
  - Vision blurred [Unknown]
  - Headache [Unknown]
  - Weight increased [Unknown]
  - Dyspepsia [Unknown]
